FAERS Safety Report 7357030-X (Version None)
Quarter: 2011Q1

REPORT INFORMATION
  Report Type: 
  Country: None (occurrence: None)
  Receive Date: 20110310
  Receipt Date: 20110310
  Transmission Date: 20110831
  Serious: Yes (Other)
  Sender: FDA-Public Use
  Company Number: None

PATIENT
  Sex: Male
  Weight: 115.5 kg

DRUGS (9)
  1. GLYBURIDE TAB [Concomitant]
  2. CETYLPYRDINIUM/MENTHOL LOZENGE [Concomitant]
  3. HYDROCHLOROTHIAZIDE TAB [Concomitant]
  4. TIGECYCLINE [Suspect]
     Indication: OSTEOMYELITIS
     Dosage: 50MG Q12H IV
     Route: 042
     Dates: start: 20101201, end: 20110213
  5. INSULIN HUMAN REGULAR INJ [Concomitant]
  6. AMLODIPINE TAB [Concomitant]
  7. INSULIN HUMAN NPH INJ [Concomitant]
  8. ACETAMINOPHEN/HYDROCODONE TAB [Concomitant]
  9. SANTYL [Concomitant]

REACTIONS (3)
  - MEDICAL DEVICE COMPLICATION [None]
  - DEEP VEIN THROMBOSIS [None]
  - INTERNATIONAL NORMALISED RATIO DECREASED [None]
